FAERS Safety Report 11316329 (Version 1)
Quarter: 2015Q3

REPORT INFORMATION
  Report Type: Spontaneous
  Country: DE (occurrence: DE)
  Receive Date: 20150728
  Receipt Date: 20150728
  Transmission Date: 20151125
  Serious: Yes (Hospitalization, Other)
  Sender: FDA-Public Use
  Company Number: DE-BRISTOL-MYERS SQUIBB COMPANY-BMS-2015-049663

PATIENT
  Age: 67 Year
  Sex: Male

DRUGS (2)
  1. DILTIAZEM [Concomitant]
     Active Substance: DILTIAZEM
     Indication: PRODUCT USED FOR UNKNOWN INDICATION
     Route: 065
  2. ELIQUIS [Suspect]
     Active Substance: APIXABAN
     Indication: CEREBROVASCULAR ACCIDENT PROPHYLAXIS
     Dosage: 5 MG, BID
     Route: 048
     Dates: start: 2015, end: 2015

REACTIONS (5)
  - Abdominal discomfort [Unknown]
  - Surgery [Unknown]
  - Upper gastrointestinal haemorrhage [Unknown]
  - Dizziness [Unknown]
  - Melaena [Unknown]

NARRATIVE: CASE EVENT DATE: 2015
